FAERS Safety Report 9146676 (Version 1)
Quarter: 2013Q1

REPORT INFORMATION
  Report Type: Spontaneous
  Country: US (occurrence: US)
  Receive Date: 20130307
  Receipt Date: 20130307
  Transmission Date: 20140127
  Serious: Yes (Other)
  Sender: FDA-Public Use
  Company Number: US-ASTRAZENECA-2013SE05044

PATIENT
  Age: 21475 Day
  Sex: Female

DRUGS (3)
  1. PRILOSEC OTC [Suspect]
     Indication: BARRETT^S OESOPHAGUS
     Dosage: DAILY
     Route: 048
  2. PRILOSEC OTC [Suspect]
     Indication: BARRETT^S OESOPHAGUS
     Dosage: 1 TABLET DAILY, WILDBERRY FLAVOR
     Route: 048
     Dates: start: 20130107, end: 20130115
  3. ATENOLOL [Concomitant]
     Indication: BLOOD PRESSURE

REACTIONS (4)
  - Dysphagia [Recovered/Resolved]
  - Hypersensitivity [Unknown]
  - Urticaria [Recovered/Resolved]
  - Off label use [Not Recovered/Not Resolved]
